FAERS Safety Report 12508794 (Version 1)
Quarter: 2016Q2

REPORT INFORMATION
  Report Type: Spontaneous
  Country: US (occurrence: US)
  Receive Date: 20160629
  Receipt Date: 20160629
  Transmission Date: 20160815
  Serious: No
  Sender: FDA-Public Use
  Company Number: US-DSJP-DSU-2016-100148

PATIENT
  Sex: Female

DRUGS (18)
  1. OXYBUTYNIN CHLORIDE. [Concomitant]
     Active Substance: OXYBUTYNIN CHLORIDE
     Indication: PRODUCT USED FOR UNKNOWN INDICATION
     Dosage: 5 MG, QD
     Route: 048
     Dates: start: 20151201
  2. VALACYCLOVIR HCL [Concomitant]
     Active Substance: VALACYCLOVIR HYDROCHLORIDE
     Indication: PRODUCT USED FOR UNKNOWN INDICATION
     Dosage: 500 MG, QD
     Route: 048
     Dates: start: 20131216
  3. DOXYCYCLINE HYCLATE. [Concomitant]
     Active Substance: DOXYCYCLINE HYCLATE
     Indication: PRODUCT USED FOR UNKNOWN INDICATION
     Dosage: 200 MG, BID
     Route: 048
  4. ONDANSETRON [Concomitant]
     Active Substance: ONDANSETRON
     Indication: VOMITING
  5. CYANOCOBALAMIN. [Concomitant]
     Active Substance: CYANOCOBALAMIN
     Indication: PRODUCT USED FOR UNKNOWN INDICATION
     Dosage: 1 ML, ONCE EVERY 2 WK
  6. CYCLOBENZAPRINE HCL [Concomitant]
     Active Substance: CYCLOBENZAPRINE HYDROCHLORIDE
     Indication: MUSCLE SPASMS
     Dosage: 1/2- 1 (5 MG) TABLET, QD
     Route: 048
     Dates: start: 20151201
  7. IBUPROFEN. [Concomitant]
     Active Substance: IBUPROFEN
     Indication: PRODUCT USED FOR UNKNOWN INDICATION
     Dosage: UNK
     Route: 048
     Dates: start: 20140308
  8. LEVOCETIRIZINE DIHYDROCHLORIDE. [Concomitant]
     Active Substance: LEVOCETIRIZINE DIHYDROCHLORIDE
     Indication: PRODUCT USED FOR UNKNOWN INDICATION
     Dosage: 5 MG, QD
     Route: 048
     Dates: start: 20120320
  9. LIDOCAINE. [Concomitant]
     Active Substance: LIDOCAINE
     Indication: PAIN
     Dosage: 5 %, AS NEEDED (TID)
     Route: 061
     Dates: start: 20151110
  10. LYRICA [Concomitant]
     Active Substance: PREGABALIN
     Indication: PRODUCT USED FOR UNKNOWN INDICATION
     Dosage: 200 MG, TID
     Route: 048
     Dates: start: 20150420
  11. PANTOPRAZOLE SODIUM. [Concomitant]
     Active Substance: PANTOPRAZOLE SODIUM
     Indication: PRODUCT USED FOR UNKNOWN INDICATION
     Dosage: 40 MG, QD
     Route: 048
     Dates: start: 20131028
  12. CYANOCOBALAMIN. [Concomitant]
     Active Substance: CYANOCOBALAMIN
     Dosage: 25 G* 1/3 ML, ONCE EVERY 1 WK
     Dates: start: 20101007
  13. WELCHOL [Suspect]
     Active Substance: COLESEVELAM HYDROCHLORIDE
     Indication: PRODUCT USED FOR UNKNOWN INDICATION
     Dosage: UNK
  14. ESTRADIOL. [Concomitant]
     Active Substance: ESTRADIOL
     Indication: PRODUCT USED FOR UNKNOWN INDICATION
     Dosage: 2 MG, QD
     Route: 048
     Dates: start: 20081107
  15. ONDANSETRON [Concomitant]
     Active Substance: ONDANSETRON
     Indication: NAUSEA
     Dosage: 4 MG, ONCE EVERY 6HR (PRN)
     Route: 048
     Dates: start: 20131206
  16. D 1000 [Concomitant]
     Active Substance: CHOLECALCIFEROL
     Indication: PRODUCT USED FOR UNKNOWN INDICATION
     Dosage: 1000 IU, QD
     Route: 048
  17. LOMOTIL [Concomitant]
     Active Substance: ATROPINE SULFATE\DIPHENOXYLATE HYDROCHLORIDE
     Indication: DIARRHOEA
     Dosage: 1 TABLET, (AFTER EACH LOOSE STOOL AND NOT TO EXCEED 8 TABLETS PER DAY)
  18. TETRACYCLINE HCL [Concomitant]
     Active Substance: TETRACYCLINE HYDROCHLORIDE
     Indication: PRODUCT USED FOR UNKNOWN INDICATION
     Dosage: 500 MG, ONCE EVERY 2 WK (OFF FOR 14 DAYS AND THEN TAKES 500 MG ONCE EVERY 2 WK)
     Route: 048
     Dates: start: 20150916

REACTIONS (1)
  - Drug hypersensitivity [Unknown]
